FAERS Safety Report 9801908 (Version 3)
Quarter: 2015Q1

REPORT INFORMATION
  Report Type: Spontaneous
  Country: US (occurrence: US)
  Receive Date: 20140107
  Receipt Date: 20150114
  Transmission Date: 20150721
  Serious: No
  Sender: FDA-Public Use
  Company Number: US-ALLERGAN-1311409US

PATIENT
  Age: 20 Year
  Sex: Female

DRUGS (2)
  1. ACZONE [Suspect]
     Active Substance: DAPSONE
     Indication: ACNE CYSTIC
  2. TAZORAC [Suspect]
     Active Substance: TAZAROTENE
     Indication: ACNE CYSTIC

REACTIONS (1)
  - Drug ineffective [Unknown]
